FAERS Safety Report 4402702-X (Version None)
Quarter: 2004Q3

REPORT INFORMATION
  Report Type: 
  Country: None (occurrence: None)
  Receive Date: 20040719
  Receipt Date: 20040701
  Transmission Date: 20050211
  Serious: Yes (Hospitalization)
  Sender: FDA-Public Use
  Company Number: 207742

PATIENT

DRUGS (2)
  1. AVASTIN [Suspect]
     Indication: RENAL CELL CARCINOMA STAGE UNSPECIFIED
     Dosage: 10 MG/KG, Q2W, INTRAVENOUS
     Route: 042
     Dates: start: 20040309
  2. INTERFERON ALFA, BETA, GAMMA (INTERFERON) [Suspect]
     Indication: RENAL CELL CARCINOMA STAGE UNSPECIFIED
     Dosage: 9 MIU, 3/WEEK, SUBCUTANEOUS
     Route: 058
     Dates: start: 20040309

REACTIONS (7)
  - ARACHNOIDITIS [None]
  - CONFUSIONAL STATE [None]
  - DRUG EFFECT DECREASED [None]
  - EYE PAIN [None]
  - LUMBAR PUNCTURE ABNORMAL [None]
  - MENINGISM [None]
  - RADICULITIS [None]
